FAERS Safety Report 4303801-3 (Version None)
Quarter: 2004Q1

REPORT INFORMATION
  Report Type: 
  Country: None (occurrence: None)
  Receive Date: 20040224
  Receipt Date: 20040224
  Transmission Date: 20041129
  Serious: Yes (Life-Threatening, Hospitalization)
  Sender: FDA-Public Use
  Company Number: None

PATIENT
  Sex: Female
  Weight: 87 kg

DRUGS (13)
  1. LEVAQUIN [Suspect]
     Indication: DIVERTICULITIS
     Dosage: ZOSYN
     Dates: start: 20040127, end: 20040130
  2. LEVAQUIN [Suspect]
     Indication: INFECTION
     Dosage: ZOSYN
     Dates: start: 20040127, end: 20040130
  3. LEVAQUIN [Suspect]
     Indication: PYREXIA
     Dosage: ZOSYN
     Dates: start: 20040127, end: 20040130
  4. LEVAQUIN [Suspect]
     Indication: DIVERTICULITIS
     Dosage: ZOSYN
     Dates: start: 20040207, end: 20040208
  5. LEVAQUIN [Suspect]
     Indication: INFECTION
     Dosage: ZOSYN
     Dates: start: 20040207, end: 20040208
  6. LEVAQUIN [Suspect]
     Indication: PYREXIA
     Dosage: ZOSYN
     Dates: start: 20040207, end: 20040208
  7. LORAZEPAM [Concomitant]
  8. ZEBETA [Concomitant]
  9. ATARAX [Concomitant]
  10. PREDNISONE [Concomitant]
  11. RISPERDAL [Concomitant]
  12. KCL TAB [Concomitant]
  13. LASIX [Concomitant]

REACTIONS (14)
  - CANDIDIASIS [None]
  - CARDIAC FAILURE CONGESTIVE [None]
  - DERMATITIS EXFOLIATIVE [None]
  - DIALYSIS [None]
  - ERYTHEMA [None]
  - FLUID OVERLOAD [None]
  - HYPOTENSION [None]
  - PERICARDIAL EFFUSION [None]
  - PLEURAL EFFUSION [None]
  - PYREXIA [None]
  - RENAL FAILURE ACUTE [None]
  - TOXIC SHOCK SYNDROME [None]
  - TRICUSPID VALVE INCOMPETENCE [None]
  - WHITE BLOOD CELL COUNT INCREASED [None]
